FAERS Safety Report 4773619-6 (Version None)
Quarter: 2005Q3

REPORT INFORMATION
  Report Type: 
  Country: None (occurrence: None)
  Receive Date: 20050914
  Receipt Date: 20041104
  Transmission Date: 20060218
  Serious: Yes (Other)
  Sender: FDA-Public Use
  Company Number: 163-20785-04110119(0)

PATIENT
  Age: 53 Year
  Sex: Male

DRUGS (4)
  1. THALOMID [Suspect]
     Indication: PROSTATE CANCER
     Dosage: 200 MG DAILY ORAL
     Route: 048
     Dates: start: 20040901, end: 20041026
  2. LEUKINE [Suspect]
     Indication: PROSTATE CANCER
     Dosage: 250 UG, Q MWF, SUBCUTANEOUS
     Route: 058
     Dates: start: 20040901
  3. LIPITOR [Concomitant]
  4. PREVACID [Concomitant]

REACTIONS (6)
  - CONSTIPATION [None]
  - DEEP VEIN THROMBOSIS [None]
  - ERYTHROCYANOSIS [None]
  - FATIGUE [None]
  - OEDEMA [None]
  - PAIN [None]
